FAERS Safety Report 17949463 (Version 1)
Quarter: 2020Q2

REPORT INFORMATION
  Report Type: Spontaneous
  Country: CN (occurrence: CN)
  Receive Date: 20200625
  Receipt Date: 20200625
  Transmission Date: 20200714
  Serious: Yes (Death, Other)
  Sender: FDA-Public Use
  Company Number: NVSC2020CN179358

PATIENT

DRUGS (2)
  1. METHOTREXATE. [Suspect]
     Active Substance: METHOTREXATE
     Indication: LANGERHANS^ CELL HISTIOCYTOSIS
     Dosage: 1 G/M2, 24-HOUR INFUSION ON DAY 1 (EVERY 35 DAYS FOR SIX CYCLES)
     Route: 041
  2. ARA-C [Suspect]
     Active Substance: CYTARABINE
     Indication: LANGERHANS^ CELL HISTIOCYTOSIS
     Dosage: 0.1 G/M2, 24-HOUR INFUSION FOR 5 DAYS (EVERY 35 DAYS FOR SIX CYCLES)
     Route: 041

REACTIONS (5)
  - Neutropenia [Unknown]
  - Thrombocytopenia [Unknown]
  - Product use in unapproved indication [Unknown]
  - Langerhans^ cell histiocytosis [Fatal]
  - Malignant neoplasm progression [Fatal]
